FAERS Safety Report 20476709 (Version 1)
Quarter: 2022Q1

REPORT INFORMATION
  Report Type: Spontaneous
  Country: US (occurrence: US)
  Receive Date: 20220215
  Receipt Date: 20220215
  Transmission Date: 20220423
  Serious: No
  Sender: FDA-Public Use
  Company Number: US-SA-SAC20220208000824

PATIENT
  Sex: Male

DRUGS (25)
  1. DUPIXENT [Suspect]
     Active Substance: DUPILUMAB
     Indication: Nasal polyps
     Dosage: 300 MG, QOW
     Route: 058
  2. NYSTATIN [Concomitant]
     Active Substance: NYSTATIN
     Dosage: NYSTATIN 100000/G POWDER
  3. TOBI [Concomitant]
     Active Substance: TOBRAMYCIN
     Dosage: 300 MG/5ML
  4. MOMETASONE FUROATE [Concomitant]
     Active Substance: MOMETASONE FUROATE
  5. VITAMIN D3 [Concomitant]
     Active Substance: CHOLECALCIFEROL
  6. GLUTAMINE [LEVOGLUTAMIDE] [Concomitant]
  7. FINASTERIDE [Concomitant]
     Active Substance: FINASTERIDE
  8. LYCOPENE [Concomitant]
     Active Substance: LYCOPENE
  9. ZINC [Concomitant]
     Active Substance: ZINC
  10. VASCEPA [Concomitant]
     Active Substance: ICOSAPENT ETHYL
  11. FIBER [Concomitant]
     Active Substance: PSYLLIUM HUSK
  12. COLACE [Concomitant]
     Active Substance: DOCUSATE SODIUM
  13. CALCIUM [Concomitant]
     Active Substance: CALCIUM
     Dosage: 500(1250)
  14. AMITIZA [Concomitant]
     Active Substance: LUBIPROSTONE
  15. LEVOTHYROXINE [Concomitant]
     Active Substance: LEVOTHYROXINE
  16. ANDROGEL [Concomitant]
     Active Substance: TESTOSTERONE
     Dosage: 1.25G-1.62
  17. GABAPENTIN [Concomitant]
     Active Substance: GABAPENTIN
  18. COLLAGEN [Concomitant]
     Active Substance: COLLAGEN
     Dosage: 125-740MG
  19. FLUTICASONE PROPIONATE [Concomitant]
     Active Substance: FLUTICASONE PROPIONATE
  20. QUETIAPINE FUMARATE [Concomitant]
     Active Substance: QUETIAPINE FUMARATE
  21. CITRACAL PLUS D [Concomitant]
  22. MAGNESIUM [Concomitant]
     Active Substance: MAGNESIUM
  23. VITAMINS NOS [Concomitant]
     Active Substance: VITAMINS
  24. COENZYME Q10 [Concomitant]
     Active Substance: DIETARY SUPPLEMENT\UBIDECARENONE
  25. SODIUM CHLORIDE [Concomitant]
     Active Substance: SODIUM CHLORIDE

REACTIONS (4)
  - Ageusia [Unknown]
  - Anosmia [Unknown]
  - Sinusitis [Recovering/Resolving]
  - Product used for unknown indication [Unknown]
